FAERS Safety Report 9723580 (Version 1)
Quarter: 2013Q4

REPORT INFORMATION
  Report Type: Spontaneous
  Country: US (occurrence: US)
  Receive Date: 20131202
  Receipt Date: 20131202
  Transmission Date: 20140711
  Serious: Yes (Hospitalization, Other)
  Sender: FDA-Public Use
  Company Number: US-PFIZER INC-2013340106

PATIENT
  Age: 25 Year
  Sex: Female
  Weight: 54.42 kg

DRUGS (2)
  1. ZYVOX [Suspect]
     Indication: STAPHYLOCOCCAL INFECTION
     Dosage: 700 MG, 2X/DAY
     Route: 048
     Dates: start: 2010
  2. ZYVOX [Suspect]
     Dosage: 700 MG, 2X/DAY
     Route: 048

REACTIONS (3)
  - Staphylococcal infection [Unknown]
  - Pyrexia [Unknown]
  - Immunosuppression [Unknown]
